FAERS Safety Report 16656784 (Version 1)
Quarter: 2019Q3

REPORT INFORMATION
  Report Type: Spontaneous
  Country: GB (occurrence: GB)
  Receive Date: 20190801
  Receipt Date: 20190801
  Transmission Date: 20191004
  Serious: Yes (Disabling)
  Sender: FDA-Public Use
  Company Number: GB-JNJFOC-20190738443

PATIENT
  Age: 21 Year
  Sex: Male
  Weight: 67 kg

DRUGS (1)
  1. CONCERTA [Suspect]
     Active Substance: METHYLPHENIDATE HYDROCHLORIDE
     Indication: ATTENTION DEFICIT/HYPERACTIVITY DISORDER
     Route: 048
     Dates: start: 20180305, end: 20190622

REACTIONS (7)
  - Pallor [Unknown]
  - Malaise [Unknown]
  - Chest pain [Recovered/Resolved]
  - Loss of consciousness [Unknown]
  - Eye movement disorder [Unknown]
  - Vomiting [Unknown]
  - Palpitations [Unknown]

NARRATIVE: CASE EVENT DATE: 20190617
